FAERS Safety Report 7318675-6 (Version None)
Quarter: 2011Q1

REPORT INFORMATION
  Report Type: 
  Country: None (occurrence: None)
  Receive Date: 20110223
  Receipt Date: 20110223
  Transmission Date: 20110831
  Serious: Yes (Disabling)
  Sender: FDA-Public Use
  Company Number: None

PATIENT
  Age: 27 Year
  Sex: Female
  Weight: 81.6475 kg

DRUGS (2)
  1. TOPIRAMATE [Suspect]
     Indication: PELVIC PAIN
     Dosage: 25MG 1 TIME DAILY PO
     Route: 048
     Dates: start: 20110210, end: 20110215
  2. TOPIRAMATE [Suspect]
     Indication: BACK PAIN
     Dosage: 25MG 1 TIME DAILY PO
     Route: 048
     Dates: start: 20110210, end: 20110215

REACTIONS (4)
  - ANGLE CLOSURE GLAUCOMA [None]
  - EYE SWELLING [None]
  - PAPILLOEDEMA [None]
  - VISUAL ACUITY REDUCED [None]
